FAERS Safety Report 6999071-8 (Version None)
Quarter: 2010Q3

REPORT INFORMATION
  Report Type: 
  Country: None (occurrence: None)
  Receive Date: 20100920
  Receipt Date: 20100907
  Transmission Date: 20110219
  Serious: Yes (Disabling)
  Sender: FDA-Public Use
  Company Number: IN-NOVOPROD-309284

PATIENT
  Sex: Male
  Weight: 171.4 kg

DRUGS (6)
  1. INSULIN DETEMIR FLEXPEN [Suspect]
     Indication: TYPE 1 DIABETES MELLITUS
     Dosage: 38 IU, QD
     Route: 058
     Dates: start: 20100424, end: 20100525
  2. INSULIN DETEMIR FLEXPEN [Suspect]
     Dosage: 32 U, QD
     Dates: start: 20100525, end: 20100526
  3. INSULIN DETEMIR FLEXPEN [Suspect]
     Dosage: 28 IU, QD
     Dates: start: 20100526
  4. INSULIN DETEMIR FLEXPEN [Suspect]
     Dosage: 24 U, QD
  5. NOVORAPID FLEXPEN [Suspect]
     Indication: TYPE 1 DIABETES MELLITUS
     Dosage: 67 IU, QD
     Route: 058
     Dates: start: 20100424
  6. NOVORAPID FLEXPEN [Suspect]
     Dosage: 12+22+25 U

REACTIONS (2)
  - HYPOGLYCAEMIA [None]
  - PETIT MAL EPILEPSY [None]
